FAERS Safety Report 9454544 (Version 6)
Quarter: 2014Q3

REPORT INFORMATION
  Report Type: Spontaneous
  Country: JP (occurrence: JP)
  Receive Date: 20130812
  Receipt Date: 20140918
  Transmission Date: 20150326
  Serious: Yes (Other)
  Sender: FDA-Public Use
  Company Number: JP-GILEAD-2013-0077649

PATIENT
  Age: 36 Year
  Sex: Male

DRUGS (9)
  1. ALESION [Concomitant]
     Active Substance: EPINASTINE HYDROCHLORIDE
     Dosage: 20MG PER DAY
     Route: 048
  2. MUCOSTA [Concomitant]
     Active Substance: REBAMIPIDE
     Dosage: 100 MG, BID
     Route: 065
  3. ALESION [Concomitant]
     Active Substance: EPINASTINE HYDROCHLORIDE
     Dosage: 20 MG, QD
     Route: 048
  4. ZEFIX [Suspect]
     Active Substance: LAMIVUDINE
     Indication: CHRONIC HEPATITIS B
     Dosage: 100 MG, QD
     Route: 048
     Dates: start: 20041113
  5. TIGASON                            /00530101/ [Concomitant]
     Dosage: 10 MG, BID
     Route: 048
  6. HEPSERA [Suspect]
     Active Substance: ADEFOVIR DIPIVOXIL
     Indication: CHRONIC HEPATITIS B
     Dosage: 10 MG, QOD
     Route: 048
     Dates: start: 20130706, end: 20140811
  7. BARACLUDE [Concomitant]
     Active Substance: ENTECAVIR
     Indication: CHRONIC HEPATITIS B
     Dosage: 1MG PER DAY
     Route: 048
     Dates: start: 200701
  8. HEPSERA [Suspect]
     Active Substance: ADEFOVIR DIPIVOXIL
     Dosage: 10 MG, QD
     Route: 048
     Dates: start: 20070127, end: 20130705
  9. MUCOSTA [Concomitant]
     Active Substance: REBAMIPIDE
     Dosage: 100MG TWICE PER DAY
     Route: 065

REACTIONS (5)
  - Blood alkaline phosphatase increased [Recovered/Resolved]
  - Osteoporosis [Unknown]
  - Hepatitis B [Unknown]
  - Hepatic function abnormal [Recovered/Resolved]
  - Hypophosphataemia [Recovering/Resolving]

NARRATIVE: CASE EVENT DATE: 200701
